FAERS Safety Report 8119873-4 (Version None)
Quarter: 2011Q4

REPORT INFORMATION
  Report Type: 
  Country: None (occurrence: None)
  Receive Date: 20111227
  Receipt Date: 20111101
  Transmission Date: 20120403
  Serious: No
  Sender: FDA-Public Use
  Company Number: PHEH2011US06025

PATIENT
  Age: 74 Year
  Sex: Female

DRUGS (6)
  1. PREDNISONE TAB [Concomitant]
  2. RANITIDINE HYDROCHLORIDE [Concomitant]
  3. GILENYA [Suspect]
     Indication: MULTIPLE SCLEROSIS
     Dosage: 0.5 MG, QD, ORAL
     Route: 048
     Dates: start: 20110501
  4. PLAVIX [Concomitant]
  5. LEVOTHYROXINE SODIUM [Concomitant]
  6. BACLOFEN [Concomitant]

REACTIONS (2)
  - ALOPECIA [None]
  - DYSKINESIA [None]
